FAERS Safety Report 9374780 (Version 1)
Quarter: 2013Q2

REPORT INFORMATION
  Report Type: Spontaneous
  Country: US (occurrence: US)
  Receive Date: 20130628
  Receipt Date: 20130628
  Transmission Date: 20140414
  Serious: No
  Sender: FDA-Public Use
  Company Number: US-JNJFOC-20130521465

PATIENT
  Sex: Female

DRUGS (8)
  1. TOPAMAX [Suspect]
     Indication: MOOD SWINGS
     Route: 048
     Dates: start: 2011
  2. INVEGA SUSTENA [Suspect]
     Indication: BIPOLAR DISORDER
     Route: 030
     Dates: start: 2011
  3. INVEGA [Suspect]
     Indication: BIPOLAR DISORDER
     Route: 048
     Dates: start: 2011
  4. SEROQUEL [Suspect]
     Indication: BIPOLAR DISORDER
     Route: 065
     Dates: start: 2011
  5. KLONOPIN [Concomitant]
     Indication: BIPOLAR DISORDER
     Route: 048
     Dates: start: 2011
  6. COGENTIN [Concomitant]
     Indication: PRODUCT USED FOR UNKNOWN INDICATION
     Route: 048
     Dates: start: 2011
  7. POTASSIUM [Concomitant]
     Route: 048
     Dates: start: 2011
  8. LASIX [Concomitant]
     Indication: DIURETIC THERAPY
     Route: 048
     Dates: start: 2011

REACTIONS (1)
  - Breast discharge [Not Recovered/Not Resolved]
